FAERS Safety Report 5418015-3 (Version None)
Quarter: 2007Q3

REPORT INFORMATION
  Report Type: 
  Country: None (occurrence: None)
  Receive Date: 20070817
  Receipt Date: 20060905
  Transmission Date: 20080115
  Serious: No
  Sender: FDA-Public Use
  Company Number: A0613963A

PATIENT
  Age: 70 Year
  Sex: Female

DRUGS (10)
  1. BEXXAR [Suspect]
     Indication: NON-HODGKIN'S LYMPHOMA
     Route: 042
     Dates: start: 20051115
  2. ENALAPRIL MALEATE [Concomitant]
  3. FAMVIR [Concomitant]
  4. GABAPENTIN [Concomitant]
  5. LEVOTHYROXINE SODIUM [Concomitant]
  6. LORAZEPAM [Concomitant]
  7. PAROXETINE [Concomitant]
  8. MULTI-VITAMIN [Concomitant]
  9. OMEPRAZOLE [Concomitant]
  10. ASPIRIN [Concomitant]

REACTIONS (4)
  - OEDEMA PERIPHERAL [None]
  - PLATELET COUNT DECREASED [None]
  - RED BLOOD CELL COUNT DECREASED [None]
  - WHITE BLOOD CELL COUNT DECREASED [None]
